FAERS Safety Report 12772560 (Version 4)
Quarter: 2017Q1

REPORT INFORMATION
  Report Type: Report from Study
  Country: None (occurrence: US)
  Receive Date: 20160922
  Receipt Date: 20170202
  Transmission Date: 20170428
  Serious: Yes (Hospitalization, Other)
  Sender: FDA-Public Use
  Company Number: US-ABBVIE-16K-163-1733759-00

PATIENT
  Age: 73 Year
  Sex: Female
  Weight: 60.84 kg

DRUGS (2)
  1. HUMIRA [Suspect]
     Active Substance: ADALIMUMAB
     Indication: RHEUMATOID ARTHRITIS
     Route: 058
     Dates: start: 2012
  2. HUMIRA [Suspect]
     Active Substance: ADALIMUMAB
     Route: 058

REACTIONS (11)
  - Loss of consciousness [Recovering/Resolving]
  - Bladder pain [Not Recovered/Not Resolved]
  - Back pain [Unknown]
  - Bladder prolapse [Unknown]
  - Device dislocation [Recovered/Resolved]
  - Head injury [Recovered/Resolved]
  - Bladder disorder [Unknown]
  - Fall [Recovering/Resolving]
  - Glaucoma [Not Recovered/Not Resolved]
  - Concussion [Recovered/Resolved]
  - Bursitis [Recovering/Resolving]

NARRATIVE: CASE EVENT DATE: 2014
